FAERS Safety Report 6165998-2 (Version None)
Quarter: 2009Q2

REPORT INFORMATION
  Report Type: 
  Country: None (occurrence: None)
  Receive Date: 20090422
  Receipt Date: 20090408
  Transmission Date: 20091009
  Serious: Yes (Death, Other)
  Sender: FDA-Public Use
  Company Number: CLOF-1000498

PATIENT
  Age: 69 Year
  Sex: Female

DRUGS (5)
  1. CLOLAR [Suspect]
     Indication: NON-HODGKIN'S LYMPHOMA
     Dosage: 40 MG/M2, QDX5, INTRAVENOUS
     Route: 042
  2. NEULASTA [Concomitant]
  3. TRIMETHOPRIM + SULFAMETHOXAZOLE [Concomitant]
  4. FLUCONAZOLE [Concomitant]
  5. CIPROFLOXACIN [Concomitant]

REACTIONS (5)
  - BACTERAEMIA [None]
  - BONE MARROW FAILURE [None]
  - MALIGNANT NEOPLASM PROGRESSION [None]
  - NON-HODGKIN'S LYMPHOMA [None]
  - ORTHOSTATIC HYPOTENSION [None]
